FAERS Safety Report 10812972 (Version 1)
Quarter: 2015Q1

REPORT INFORMATION
  Report Type: Report from Study
  Country: US (occurrence: US)
  Receive Date: 20150218
  Receipt Date: 20150218
  Transmission Date: 20150721
  Serious: No
  Sender: FDA-Public Use
  Company Number: US-ABBVIE-14K-163-1272516-00

PATIENT
  Age: 28 Year
  Sex: Male

DRUGS (1)
  1. HUMIRA [Suspect]
     Active Substance: ADALIMUMAB
     Indication: PSORIASIS
     Dates: start: 201309

REACTIONS (4)
  - Injection site bruising [Recovering/Resolving]
  - Device issue [Unknown]
  - Drug dose omission [Unknown]
  - Nail growth abnormal [Recovering/Resolving]

NARRATIVE: CASE EVENT DATE: 201407
